FAERS Safety Report 6675738-6 (Version None)
Quarter: 2010Q2

REPORT INFORMATION
  Report Type: 
  Country: None (occurrence: None)
  Receive Date: 20100409
  Receipt Date: 20100311
  Transmission Date: 20101027
  Serious: Yes (Hospitalization)
  Sender: FDA-Public Use
  Company Number: FR-ABBOTT-10P-056-0637017-00

PATIENT
  Sex: Female
  Weight: 85 kg

DRUGS (22)
  1. HUMIRA [Suspect]
     Indication: RHEUMATOID ARTHRITIS
     Route: 058
     Dates: start: 20041129, end: 20051101
  2. HUMIRA [Suspect]
     Route: 058
     Dates: start: 20060522
  3. HUMIRA [Concomitant]
     Dates: start: 20031117
  4. EQUANIL [Concomitant]
     Indication: SLEEP DISORDER
     Route: 048
  5. EQUANIL [Concomitant]
     Indication: PROPHYLAXIS
  6. TENORMIN [Concomitant]
     Indication: DRUG USE FOR UNKNOWN INDICATION
     Route: 048
  7. FORLAX [Concomitant]
     Indication: GASTROINTESTINAL DISORDER
     Route: 048
  8. OMEPRAZOLE [Concomitant]
     Indication: GASTRIC DISORDER
     Route: 048
  9. OMEPRAZOLE [Concomitant]
     Indication: PROPHYLAXIS
  10. PLAVIX [Concomitant]
     Indication: DRUG USE FOR UNKNOWN INDICATION
     Route: 048
  11. KARDEGIC [Concomitant]
     Indication: ANGIOPATHY
     Route: 048
  12. KARDEGIC [Concomitant]
     Indication: PROPHYLAXIS
  13. CYCLOSPORINE [Concomitant]
     Indication: RHEUMATOID ARTHRITIS
  14. LEVOTHYROX [Concomitant]
     Indication: HYPOTHYROIDISM
     Route: 048
     Dates: start: 19940701
  15. METHOTREXATE [Concomitant]
     Indication: RHEUMATOID ARTHRITIS
     Dates: start: 19980701, end: 20000701
  16. METHOTREXATE [Concomitant]
     Route: 048
     Dates: start: 20030215
  17. STAGID [Concomitant]
     Indication: DIABETES MELLITUS
     Dosage: 700
     Route: 048
     Dates: start: 20000701
  18. ARAVA [Concomitant]
     Indication: RHEUMATOID ARTHRITIS
     Route: 048
     Dates: start: 20000701
  19. ENBREL [Concomitant]
     Indication: RHEUMATOID ARTHRITIS
     Route: 058
     Dates: start: 20020315, end: 20020815
  20. CO-APROVEL [Concomitant]
     Indication: HYPERTENSION
     Route: 048
     Dates: start: 20021215
  21. ZOCOR [Concomitant]
     Indication: HYPERLIPIDAEMIA
     Route: 048
     Dates: start: 20030115
  22. SPECIAFOLDINE [Concomitant]
     Indication: PROPHYLAXIS
     Route: 048
     Dates: start: 20030215

REACTIONS (1)
  - VASCULITIS [None]
